FAERS Safety Report 18364129 (Version 2)
Quarter: 2020Q4

REPORT INFORMATION
  Report Type: Spontaneous
  Country: US (occurrence: US)
  Receive Date: 20201009
  Receipt Date: 20201103
  Transmission Date: 20210114
  Serious: No
  Sender: FDA-Public Use
  Company Number: US-ASTRAZENECA-2020SF24696

PATIENT
  Sex: Male
  Weight: 71.7 kg

DRUGS (2)
  1. SYMBICORT [Suspect]
     Active Substance: BUDESONIDE\FORMOTEROL FUMARATE DIHYDRATE
     Indication: BRONCHIECTASIS
     Dosage: 160/4.5 MCG, INHALATION,,2 PUFFS TWICE DAILY
     Route: 055
     Dates: start: 2016
  2. SYMBICORT [Suspect]
     Active Substance: BUDESONIDE\FORMOTEROL FUMARATE DIHYDRATE
     Indication: CHRONIC OBSTRUCTIVE PULMONARY DISEASE
     Dosage: 160/4.5 MCG, INHALATION,,2 PUFFS TWICE DAILY
     Route: 055
     Dates: start: 2016

REACTIONS (5)
  - Drug delivery system malfunction [Unknown]
  - Intentional device misuse [Unknown]
  - Device failure [Unknown]
  - Eye disorder [Unknown]
  - Off label use [Unknown]
